FAERS Safety Report 4652846-2 (Version None)
Quarter: 2005Q2

REPORT INFORMATION
  Report Type: 
  Country: None (occurrence: None)
  Receive Date: 20050502
  Receipt Date: 20050415
  Transmission Date: 20051028
  Serious: No
  Sender: FDA-Public Use
  Company Number: 10912

PATIENT

DRUGS (3)
  1. IRINOTECAN HCL [Suspect]
     Indication: RECTAL CANCER
     Dosage: 70 MG/M2 WEEKLY, IV
     Route: 042
  2. FLUOROURACIL [Suspect]
     Indication: RECTAL CANCER
     Dosage: 350 MG/M2 WEEKLY, IV
     Route: 042
  3. FOLINIC ACID [Suspect]
     Indication: RECTAL CANCER
     Dosage: 250 MG/M2 WEEKLY, IV
     Route: 042

REACTIONS (1)
  - NEUTROPENIA [None]
